FAERS Safety Report 16677850 (Version 2)
Quarter: 2022Q2

REPORT INFORMATION
  Report Type: Spontaneous
  Country: US (occurrence: US)
  Receive Date: 20190807
  Receipt Date: 20220629
  Transmission Date: 20220721
  Serious: No
  Sender: FDA-Public Use
  Company Number: US-JNJFOC-20190802074

PATIENT
  Age: 7 Year
  Sex: Male

DRUGS (4)
  1. RISPERDAL [Suspect]
     Active Substance: RISPERIDONE
     Indication: Product used for unknown indication
     Route: 048
     Dates: start: 2006, end: 2008
  2. RISPERDAL [Suspect]
     Active Substance: RISPERIDONE
     Route: 048
     Dates: start: 2013
  3. RISPERDAL [Suspect]
     Active Substance: RISPERIDONE
     Dosage: 2 MG IN THE MORNING AND 4 MG AT BEDTIME
     Route: 048
     Dates: end: 20080325
  4. RISPERDAL [Suspect]
     Active Substance: RISPERIDONE
     Route: 048
     Dates: start: 20080411

REACTIONS (5)
  - Withdrawal syndrome [Unknown]
  - Tongue thrust [Unknown]
  - Dyskinesia [Unknown]
  - Gynaecomastia [Unknown]
  - Emotional disorder [Unknown]

NARRATIVE: CASE EVENT DATE: 20080404
